FAERS Safety Report 9755961 (Version 1)
Quarter: 2013Q4

REPORT INFORMATION
  Report Type: Spontaneous
  Country: US (occurrence: US)
  Receive Date: 20131213
  Receipt Date: 20131213
  Transmission Date: 20140711
  Serious: No
  Sender: FDA-Public Use
  Company Number: US-GLAXOSMITHKLINE-A1027295A

PATIENT
  Age: 72 Year
  Sex: Female
  Weight: 65.9 kg

DRUGS (2)
  1. NICOTINE PATCH [Suspect]
     Indication: SMOKING CESSATION THERAPY
     Route: 061
     Dates: start: 201304, end: 201304
  2. POLYPHARMACY [Concomitant]

REACTIONS (3)
  - Application site pruritus [Recovered/Resolved]
  - Application site rash [Unknown]
  - Product quality issue [Unknown]
